FAERS Safety Report 10071303 (Version 1)
Quarter: 2014Q2

REPORT INFORMATION
  Report Type: Spontaneous
  Country: US (occurrence: US)
  Receive Date: 20140410
  Receipt Date: 20140410
  Transmission Date: 20141212
  Serious: No
  Sender: FDA-Public Use
  Company Number: US-PFIZER INC-2014101738

PATIENT
  Age: 60 Year
  Sex: Female
  Weight: 56.24 kg

DRUGS (3)
  1. EFFEXOR XR [Suspect]
     Indication: PANIC ATTACK
     Dosage: 150 MG, 1X/DAY
     Route: 048
     Dates: start: 2010, end: 201308
  2. EFFEXOR XR [Suspect]
     Indication: DEPRESSION
  3. ADDERALL [Concomitant]
     Indication: ATTENTION DEFICIT/HYPERACTIVITY DISORDER
     Dosage: 50 MG, 1X/DAY

REACTIONS (1)
  - Drug ineffective [Unknown]
